FAERS Safety Report 12100967 (Version 1)
Quarter: 2016Q1

REPORT INFORMATION
  Report Type: Spontaneous
  Country: US (occurrence: US)
  Receive Date: 20160222
  Receipt Date: 20160222
  Transmission Date: 20160526
  Serious: Yes (Other)
  Sender: FDA-Public Use
  Company Number: US-BAXALTA-2016BLT000802

PATIENT
  Age: 68 Year
  Sex: Female

DRUGS (5)
  1. GAMMAGARD S/D [Suspect]
     Active Substance: HUMAN IMMUNOGLOBULIN G
     Dosage: 30 G, UNK
     Route: 042
     Dates: start: 20160203
  2. GAMMAGARD S/D [Suspect]
     Active Substance: HUMAN IMMUNOGLOBULIN G
     Indication: IMMUNODEFICIENCY COMMON VARIABLE
     Dosage: 30 UNK, UNK
     Route: 042
     Dates: start: 2007
  3. NORMAL SALINE [Suspect]
     Active Substance: SODIUM CHLORIDE
     Indication: PRODUCT USED FOR UNKNOWN INDICATION
     Dosage: UNK
     Route: 042
  4. GAMMAGARD S/D [Suspect]
     Active Substance: HUMAN IMMUNOGLOBULIN G
     Dosage: 30 UNK, UNK
     Route: 042
     Dates: start: 20160119
  5. NORMAL SALINE [Suspect]
     Active Substance: SODIUM CHLORIDE
     Dosage: UNK, WITH GAMMAGARD S/D
     Route: 042
     Dates: start: 20160203

REACTIONS (6)
  - Malaise [Recovered/Resolved]
  - Weight increased [Recovered/Resolved]
  - Cardiac failure congestive [Recovering/Resolving]
  - Headache [Recovered/Resolved]
  - Hepatitis B antibody [Recovering/Resolving]
  - Cough [Recovered/Resolved]

NARRATIVE: CASE EVENT DATE: 20160119
